FAERS Safety Report 8510193-2 (Version None)
Quarter: 2012Q3

REPORT INFORMATION
  Report Type: 
  Country: None (occurrence: None)
  Receive Date: 20120713
  Receipt Date: 20120709
  Transmission Date: 20120928
  Serious: Yes (Death, Hospitalization, Other)
  Sender: FDA-Public Use
  Company Number: US-009507513-2010SP025130

PATIENT

DRUGS (1)
  1. NUVARING [Suspect]
     Indication: CONTRACEPTION
     Dates: start: 20080331, end: 20080425

REACTIONS (5)
  - PULMONARY INFARCTION [None]
  - PULMONARY EMBOLISM [None]
  - IMPAIRED WORK ABILITY [None]
  - ECONOMIC PROBLEM [None]
  - THROMBOSIS [None]
